FAERS Safety Report 13488254 (Version 1)
Quarter: 2017Q2

REPORT INFORMATION
  Report Type: Spontaneous
  Country: US (occurrence: US)
  Receive Date: 20170426
  Receipt Date: 20170426
  Transmission Date: 20170830
  Serious: Yes (Hospitalization)
  Sender: FDA-Public Use
  Company Number: None

PATIENT
  Age: 58 Year
  Sex: Female
  Weight: 91.9 kg

DRUGS (20)
  1. MULTIVITAMIN [Concomitant]
     Active Substance: VITAMINS
  2. LOPRESSOR [Concomitant]
     Active Substance: METOPROLOL TARTRATE
  3. PEMBROLIZUMAB 200 MG [Suspect]
     Active Substance: PEMBROLIZUMAB
     Route: 042
     Dates: start: 20170105, end: 20170413
  4. BACTRIM [Concomitant]
     Active Substance: SULFAMETHOXAZOLE\TRIMETHOPRIM
  5. OMEPRAZOLE. [Concomitant]
     Active Substance: OMEPRAZOLE
  6. VITAMIN B COMPLEX [Concomitant]
     Active Substance: CYANOCOBALAMIN\DEXPANTHENOL\NIACINAMIDE\PYRIDOXINE HYDROCHLORIDE\RIBOFLAVIN 5^-PHOSPHATE SODIUM\THIAMINE HYDROCHLORIDE\VITAMIN B COMPLEX
  7. SENNA [Concomitant]
     Active Substance: SENNA LEAF\SENNOSIDES\SENNOSIDES A AND B
  8. GABAPENTIN. [Concomitant]
     Active Substance: GABAPENTIN
  9. AKWA TEARS [Concomitant]
     Active Substance: POLYVINYL ALCOHOL
  10. CALCIUM CARBONATE. [Concomitant]
     Active Substance: CALCIUM CARBONATE
  11. TESSALON [Concomitant]
     Active Substance: BENZONATATE
  12. KEPPRA [Concomitant]
     Active Substance: LEVETIRACETAM
  13. LASIX [Concomitant]
     Active Substance: FUROSEMIDE
  14. METFORMIN [Concomitant]
     Active Substance: METFORMIN HYDROCHLORIDE
  15. DRISDOL [Concomitant]
     Active Substance: ERGOCALCIFEROL
  16. TYLENOL [Concomitant]
     Active Substance: ACETAMINOPHEN
  17. DECADRON [Concomitant]
     Active Substance: DEXAMETHASONE
  18. GENTEAL MILD [Concomitant]
     Active Substance: HYPROMELLOSE 2910 (4000 MPA.S)
  19. GLYCOLAX [Concomitant]
     Active Substance: POLYETHYLENE GLYCOL 3350
  20. ROBITUSSIN (GUAIFENESIN) [Concomitant]
     Active Substance: GUAIFENESIN

REACTIONS (4)
  - Haemorrhage intracranial [None]
  - Cerebrovascular accident [None]
  - Mental status changes [None]
  - Encephalopathy [None]

NARRATIVE: CASE EVENT DATE: 20170421
